FAERS Safety Report 14813356 (Version 1)
Quarter: 2018Q2

REPORT INFORMATION
  Report Type: Spontaneous
  Country: SG (occurrence: SG)
  Receive Date: 20180426
  Receipt Date: 20180426
  Transmission Date: 20180711
  Serious: Yes (Hospitalization, Other)
  Sender: FDA-Public Use
  Company Number: SG-STRIDES ARCOLAB LIMITED-2018SP003115

PATIENT

DRUGS (1)
  1. IBUPROFEN. [Suspect]
     Active Substance: IBUPROFEN
     Indication: PATENT DUCTUS ARTERIOSUS
     Dosage: UNK
     Route: 048

REACTIONS (7)
  - Gastric pneumatosis [Recovered/Resolved]
  - Gastrointestinal injury [Recovered/Resolved]
  - Portal venous gas [Recovered/Resolved]
  - Pneumatosis intestinalis [Recovered/Resolved]
  - Haematochezia [Recovered/Resolved]
  - Intestinal ulcer [Recovered/Resolved]
  - Off label use [Unknown]
